FAERS Safety Report 20665686 (Version 2)
Quarter: 2022Q2

REPORT INFORMATION
  Report Type: Spontaneous
  Country: BE (occurrence: BE)
  Receive Date: 20220402
  Receipt Date: 20220420
  Transmission Date: 20220720
  Serious: Yes (Hospitalization, Other)
  Sender: FDA-Public Use
  Company Number: BE-AMGEN-BELSP2022053954

PATIENT
  Age: 57 Year
  Sex: Female

DRUGS (2)
  1. PROLIA [Suspect]
     Active Substance: DENOSUMAB
     Indication: Osteoporosis
     Dosage: UNK
     Route: 065
  2. NEOSTIGMINE [Concomitant]
     Active Substance: NEOSTIGMINE
     Route: 042

REACTIONS (8)
  - Nausea [Unknown]
  - Functional gastrointestinal disorder [Unknown]
  - Hepatic steatosis [Unknown]
  - Impaired quality of life [Unknown]
  - Vomiting [Unknown]
  - Gastrointestinal bacterial overgrowth [Unknown]
  - Hiatus hernia [Unknown]
  - Off label use [Unknown]
